FAERS Safety Report 18357659 (Version 3)
Quarter: 2020Q4

REPORT INFORMATION
  Report Type: Spontaneous
  Country: US (occurrence: US)
  Receive Date: 20201008
  Receipt Date: 20201213
  Transmission Date: 20210114
  Serious: No
  Sender: FDA-Public Use
  Company Number: US-SA-2020SA275318

PATIENT

DRUGS (11)
  1. DUPIXENT [Suspect]
     Active Substance: DUPILUMAB
     Indication: DERMATITIS ATOPIC
  2. EPINEPHRINE. [Concomitant]
     Active Substance: EPINEPHRINE
  3. PILOCARPINE. [Concomitant]
     Active Substance: PILOCARPINE
  4. PREDNISOLONE. [Concomitant]
     Active Substance: PREDNISOLONE
  5. TRAMADOL HCL [Concomitant]
     Active Substance: TRAMADOL HYDROCHLORIDE
  6. DUPIXENT [Suspect]
     Active Substance: DUPILUMAB
     Indication: SKIN DISORDER
     Dosage: 300 MG, QOW
     Route: 058
     Dates: start: 20200626
  7. HYDROXYCHLOROQUINE [Concomitant]
     Active Substance: HYDROXYCHLOROQUINE
  8. DESONIDE. [Concomitant]
     Active Substance: DESONIDE
  9. DULOXETINE. [Concomitant]
     Active Substance: DULOXETINE
  10. HYDROCHLOROTH [Concomitant]
     Active Substance: HYDROCHLOROTHIAZIDE
  11. TAMOXIFEN [Concomitant]
     Active Substance: TAMOXIFEN

REACTIONS (10)
  - Pruritus [Unknown]
  - Swelling face [Unknown]
  - Conjunctivitis [Not Recovered/Not Resolved]
  - Drug ineffective [Unknown]
  - Vitreous floaters [Not Recovered/Not Resolved]
  - Product use in unapproved indication [Unknown]
  - Flushing [Unknown]
  - Vision blurred [Not Recovered/Not Resolved]
  - Skin exfoliation [Unknown]
  - Rash [Not Recovered/Not Resolved]

NARRATIVE: CASE EVENT DATE: 2020
